FAERS Safety Report 9927852 (Version 4)
Quarter: 2015Q1

REPORT INFORMATION
  Report Type: Report from Study
  Country: DE (occurrence: DE)
  Receive Date: 20140227
  Receipt Date: 20150131
  Transmission Date: 20150721
  Serious: Yes (Hospitalization)
  Sender: FDA-Public Use
  Company Number: DE-ROCHE-1063759

PATIENT
  Age: 73 Year
  Sex: Male
  Weight: 94.5 kg

DRUGS (60)
  1. PANTOZOL [Concomitant]
     Active Substance: PANTOPRAZOLE SODIUM
     Route: 065
     Dates: start: 20110830, end: 20110902
  2. IRINOTECAN [Suspect]
     Active Substance: IRINOTECAN
     Indication: GLIOBLASTOMA
     Dosage: LAST DOSE PRIOR TO SAE 17 APRIL 2012
     Route: 042
     Dates: start: 20110524, end: 20120417
  3. ONDANSETRON [Concomitant]
     Active Substance: ONDANSETRON
     Route: 065
     Dates: start: 20110607, end: 20110609
  4. MCP AL [Concomitant]
     Route: 065
     Dates: start: 20110803, end: 20110805
  5. EMEND [Concomitant]
     Active Substance: APREPITANT
     Route: 065
     Dates: start: 20110608, end: 20110609
  6. EMEND [Concomitant]
     Active Substance: APREPITANT
     Route: 065
     Dates: start: 20110622, end: 20110623
  7. EMEND [Concomitant]
     Active Substance: APREPITANT
     Route: 065
     Dates: start: 20110803, end: 20110803
  8. EMEND [Concomitant]
     Active Substance: APREPITANT
     Route: 065
     Dates: start: 20110928, end: 20110928
  9. EMEND [Concomitant]
     Active Substance: APREPITANT
     Route: 065
     Dates: start: 20111012, end: 20111013
  10. DEXAMETHASONE. [Concomitant]
     Active Substance: DEXAMETHASONE
     Route: 065
     Dates: start: 20110719, end: 20110719
  11. EMEND [Concomitant]
     Active Substance: APREPITANT
     Route: 065
     Dates: start: 20110719, end: 20110719
  12. EMEND [Concomitant]
     Active Substance: APREPITANT
     Route: 065
     Dates: start: 20110831, end: 20110901
  13. DEXAMETHASONE. [Concomitant]
     Active Substance: DEXAMETHASONE
     Route: 065
     Dates: start: 20110830, end: 20110901
  14. DEXAMETHASONE. [Concomitant]
     Active Substance: DEXAMETHASONE
     Route: 065
     Dates: start: 20110312, end: 20110312
  15. BEVACIZUMAB [Suspect]
     Active Substance: BEVACIZUMAB
     Indication: GLIOBLASTOMA
     Dosage: LAST DOSE PRIOR TO SAE 17 APRIL 2012
     Route: 042
     Dates: start: 20110330, end: 20120417
  16. COTRIM D.S. [Concomitant]
     Active Substance: SULFAMETHOXAZOLE\TRIMETHOPRIM
     Route: 065
     Dates: start: 20110330, end: 20110531
  17. BETAISODONA [Concomitant]
     Active Substance: POVIDONE-IODINE
     Route: 065
     Dates: start: 20110412
  18. ONDANSETRON [Concomitant]
     Active Substance: ONDANSETRON
     Route: 065
     Dates: start: 20110913, end: 20110915
  19. DEXAMETHASONE. [Concomitant]
     Active Substance: DEXAMETHASONE
     Route: 065
     Dates: start: 20110816, end: 20110818
  20. DEXAMETHASONE. [Concomitant]
     Active Substance: DEXAMETHASONE
     Route: 065
     Dates: start: 20110928, end: 20110930
  21. DEXAMETHASONE. [Concomitant]
     Active Substance: DEXAMETHASONE
     Route: 065
     Dates: start: 20110310, end: 20110310
  22. BISOPROLOL [Concomitant]
     Active Substance: BISOPROLOL
  23. RAMIPRIL. [Concomitant]
     Active Substance: RAMIPRIL
  24. VOMEX A [Concomitant]
     Active Substance: DIMENHYDRINATE
     Route: 065
     Dates: start: 20110514, end: 20110514
  25. ONDANSETRON [Concomitant]
     Active Substance: ONDANSETRON
     Route: 065
     Dates: start: 20110816, end: 20110818
  26. ONDANSETRON [Concomitant]
     Active Substance: ONDANSETRON
     Route: 065
     Dates: start: 20110928, end: 20110930
  27. ONDANSETRON [Concomitant]
     Active Substance: ONDANSETRON
     Route: 065
     Dates: start: 20111011, end: 20111013
  28. ONDANSETRON [Concomitant]
     Active Substance: ONDANSETRON
     Route: 065
     Dates: start: 20110803, end: 20110805
  29. MCP AL [Concomitant]
     Route: 065
     Dates: start: 20110817, end: 20110818
  30. DEXAMETHASONE. [Concomitant]
     Active Substance: DEXAMETHASONE
     Route: 065
     Dates: start: 20110311, end: 20110311
  31. MCP AL [Concomitant]
     Route: 065
     Dates: start: 20110720, end: 20110721
  32. MCP AL [Concomitant]
     Route: 065
     Dates: start: 20110913, end: 20110915
  33. EMEND [Concomitant]
     Active Substance: APREPITANT
     Route: 065
     Dates: start: 20110607, end: 20110607
  34. EMEND [Concomitant]
     Active Substance: APREPITANT
     Route: 065
     Dates: start: 20110913, end: 20110913
  35. DEXAMETHASONE. [Concomitant]
     Active Substance: DEXAMETHASONE
     Route: 065
     Dates: start: 20110913, end: 20110915
  36. DEXAMETHASONE. [Concomitant]
     Active Substance: DEXAMETHASONE
     Route: 065
     Dates: start: 20110301, end: 20110309
  37. ARLEVERTAN [Concomitant]
     Route: 065
     Dates: start: 20110514, end: 20110514
  38. ONDANSETRON [Concomitant]
     Active Substance: ONDANSETRON
     Route: 065
     Dates: start: 20110719, end: 20110723
  39. MCP AL [Concomitant]
     Route: 065
     Dates: start: 20110928, end: 20110928
  40. MCP AL [Concomitant]
     Route: 065
     Dates: start: 20110929, end: 20110930
  41. EMEND [Concomitant]
     Active Substance: APREPITANT
     Route: 065
     Dates: start: 20110720, end: 20110721
  42. DEXAMETHASONE. [Concomitant]
     Active Substance: DEXAMETHASONE
     Route: 065
     Dates: start: 20110428, end: 20110428
  43. DEXAMETHASONE. [Concomitant]
     Active Substance: DEXAMETHASONE
     Route: 065
     Dates: start: 20110803, end: 20110803
  44. DEXAMETHASONE. [Concomitant]
     Active Substance: DEXAMETHASONE
     Route: 065
     Dates: start: 20111011, end: 20111013
  45. IBUPROFEN. [Concomitant]
     Active Substance: IBUPROFEN
     Dosage: TAKEN ON DEMAND
     Route: 065
     Dates: start: 20110428
  46. IBUPROFEN. [Concomitant]
     Active Substance: IBUPROFEN
     Route: 065
     Dates: start: 20110928, end: 20110928
  47. EMEND [Concomitant]
     Active Substance: APREPITANT
     Route: 065
     Dates: start: 20110621, end: 20110621
  48. EMEND [Concomitant]
     Active Substance: APREPITANT
     Route: 065
     Dates: start: 20110816, end: 20110816
  49. EMEND [Concomitant]
     Active Substance: APREPITANT
     Route: 065
     Dates: start: 20110830, end: 20110830
  50. EMEND [Concomitant]
     Active Substance: APREPITANT
     Route: 065
     Dates: start: 20110914, end: 20110915
  51. EMEND [Concomitant]
     Active Substance: APREPITANT
     Route: 065
     Dates: start: 20111011, end: 20111011
  52. DEXAMETHASONE. [Concomitant]
     Active Substance: DEXAMETHASONE
     Route: 065
     Dates: start: 20110804, end: 20110805
  53. ONDANSETRON [Concomitant]
     Active Substance: ONDANSETRON
     Route: 065
     Dates: start: 20110621, end: 20110623
  54. ONDANSETRON [Concomitant]
     Active Substance: ONDANSETRON
     Route: 065
     Dates: start: 20110830, end: 20110901
  55. MCP AL [Concomitant]
     Route: 065
     Dates: start: 20110608, end: 20110609
  56. MCP AL [Concomitant]
     Route: 065
     Dates: start: 20110622, end: 20110623
  57. MCP AL [Concomitant]
     Route: 065
     Dates: start: 20111011, end: 20111013
  58. EMEND [Concomitant]
     Active Substance: APREPITANT
     Route: 065
     Dates: start: 20110804, end: 20110805
  59. EMEND [Concomitant]
     Active Substance: APREPITANT
     Route: 065
     Dates: start: 20110817, end: 20110818
  60. EMEND [Concomitant]
     Active Substance: APREPITANT
     Route: 065
     Dates: start: 20110929, end: 20110930

REACTIONS (1)
  - Restrictive cardiomyopathy [Not Recovered/Not Resolved]

NARRATIVE: CASE EVENT DATE: 20120404
